FAERS Safety Report 6102906-4 (Version None)
Quarter: 2009Q1

REPORT INFORMATION
  Report Type: 
  Country: None (occurrence: None)
  Receive Date: 20090303
  Receipt Date: 20090303
  Transmission Date: 20090719
  Serious: Yes (Other)
  Sender: FDA-Public Use
  Company Number: None

PATIENT
  Age: 58 Year
  Sex: Female
  Weight: 61.2356 kg

DRUGS (2)
  1. PRED FORTE [Suspect]
     Indication: CATARACT OPERATION
     Dosage: SEE ABOVE SEE AGOVE OPHTHALMIC
     Route: 047
     Dates: start: 20090109, end: 20090217
  2. PRED FORTE [Suspect]
     Indication: POSTOPERATIVE CARE
     Dosage: SEE ABOVE SEE AGOVE OPHTHALMIC
     Route: 047
     Dates: start: 20090109, end: 20090217

REACTIONS (1)
  - OESOPHAGEAL PAIN [None]
